FAERS Safety Report 20618688 (Version 1)
Quarter: 2022Q1

REPORT INFORMATION
  Report Type: Spontaneous
  Country: US (occurrence: None)
  Receive Date: 20220322
  Receipt Date: 20220322
  Transmission Date: 20220423
  Serious: No
  Sender: FDA-Public Use
  Company Number: 2022A093084

PATIENT
  Sex: Female
  Weight: 83 kg

DRUGS (2)
  1. SYMBICORT [Suspect]
     Active Substance: BUDESONIDE\FORMOTEROL FUMARATE DIHYDRATE
     Indication: Asthma
     Dosage: 160/4.5MCG, 120 INHALATIONS, 2 INHALATIONS TWICE DAILY
     Route: 055
  2. TRULICITY [Concomitant]
     Active Substance: DULAGLUTIDE
     Route: 065

REACTIONS (6)
  - Dyspnoea [Unknown]
  - Weight decreased [Unknown]
  - Rotator cuff syndrome [Unknown]
  - Type 2 diabetes mellitus [Unknown]
  - Device delivery system issue [Unknown]
  - Device use issue [Unknown]
